FAERS Safety Report 16145989 (Version 1)
Quarter: 2019Q2

REPORT INFORMATION
  Report Type: Spontaneous
  Country: FR (occurrence: FR)
  Receive Date: 20190402
  Receipt Date: 20190402
  Transmission Date: 20190711
  Serious: Yes (Life-Threatening)
  Sender: FDA-Public Use
  Company Number: FR-ACCORD-117531

PATIENT
  Age: 52 Year
  Sex: Female

DRUGS (7)
  1. THERALENE [Suspect]
     Active Substance: TRIMEPRAZINE
     Dosage: STRENGTH 5 MG, DIVISIBLE
     Route: 048
     Dates: start: 20190114, end: 20190114
  2. TERALITHE [Suspect]
     Active Substance: LITHIUM CARBONATE
     Dosage: STRENGTH 400 MG, BREAKABLE SUSTAINED RELEASE TABLET
     Route: 048
     Dates: start: 20190114, end: 20190114
  3. SERTRALINE [Suspect]
     Active Substance: SERTRALINE HYDROCHLORIDE
     Route: 048
     Dates: start: 20190114, end: 20190114
  4. SERESTA [Suspect]
     Active Substance: OXAZEPAM
     Dosage: STRENGTH 50 MG, TABLET BREACKABLE
     Route: 048
     Dates: start: 20190114, end: 20190114
  5. PARACETAMOL [Suspect]
     Active Substance: ACETAMINOPHEN
     Route: 048
     Dates: start: 20190114, end: 20190114
  6. ZOPICLONE [Suspect]
     Active Substance: ZOPICLONE
     Route: 048
     Dates: start: 20190114, end: 20190114
  7. QUETIAPINE. [Suspect]
     Active Substance: QUETIAPINE
     Route: 048
     Dates: start: 20190114, end: 20190114

REACTIONS (6)
  - Coma [Recovering/Resolving]
  - Acute kidney injury [Recovered/Resolved]
  - Pneumonia aspiration [Recovering/Resolving]
  - Electrocardiogram QT prolonged [Recovered/Resolved]
  - Poisoning deliberate [Unknown]
  - Suicide attempt [Unknown]

NARRATIVE: CASE EVENT DATE: 20190114
